FAERS Safety Report 7572898-X (Version None)
Quarter: 2011Q2

REPORT INFORMATION
  Report Type: 
  Country: None (occurrence: None)
  Receive Date: 20110627
  Receipt Date: 20110613
  Transmission Date: 20111010
  Serious: Yes (Other)
  Sender: FDA-Public Use
  Company Number: CA-ELI_LILLY_AND_COMPANY-CA201106003377

PATIENT
  Sex: Male
  Weight: 71.8 kg

DRUGS (5)
  1. ZYPREXA [Suspect]
     Dosage: 7.5 MG, QD
  2. RISPERIDONE [Concomitant]
  3. XANAX [Concomitant]
  4. MELLARIL [Concomitant]
  5. ZYPREXA [Suspect]
     Indication: PARANOIA
     Dosage: 2.5 MG, QD

REACTIONS (7)
  - SYNCOPE [None]
  - HYPERTENSION [None]
  - HYPERLIPIDAEMIA [None]
  - OFF LABEL USE [None]
  - DIABETES MELLITUS [None]
  - WEIGHT INCREASED [None]
  - LOSS OF CONSCIOUSNESS [None]
